FAERS Safety Report 17169216 (Version 1)
Quarter: 2019Q4

REPORT INFORMATION
  Report Type: Spontaneous
  Country: US (occurrence: US)
  Receive Date: 20191125
  Receipt Date: 20191125
  Transmission Date: 20200122
  Serious: No
  Sender: FDA-Public Use
  Company Number: None

PATIENT
  Age: 74 Year
  Sex: Female
  Weight: 69.6 kg

DRUGS (2)
  1. DAUNORUBICIN [Suspect]
     Active Substance: DAUNORUBICIN
     Dates: end: 20190922
  2. CYTARABINE. [Suspect]
     Active Substance: CYTARABINE
     Dates: end: 20190926

REACTIONS (2)
  - Febrile neutropenia [None]
  - Mucosal inflammation [None]

NARRATIVE: CASE EVENT DATE: 20191005
